FAERS Safety Report 21765489 (Version 1)
Quarter: 2022Q4

REPORT INFORMATION
  Report Type: Spontaneous
  Country: US (occurrence: US)
  Receive Date: 20221222
  Receipt Date: 20221222
  Transmission Date: 20230113
  Serious: Yes (Death, Other)
  Sender: FDA-Public Use
  Company Number: US-AMGEN-USASP2022218814

PATIENT
  Age: 54 Year
  Sex: Female

DRUGS (4)
  1. CINACALCET HYDROCHLORIDE [Suspect]
     Active Substance: CINACALCET HYDROCHLORIDE
     Indication: Hypercalcaemia of malignancy
     Dosage: 30 MILLIGRAM, QD
     Route: 065
  2. XGEVA [Suspect]
     Active Substance: DENOSUMAB
     Indication: Hypercalcaemia of malignancy
     Dosage: 120 MILLIGRAM
     Route: 058
  3. ZOLEDRONIC ACID [Concomitant]
     Active Substance: ZOLEDRONIC ACID
     Indication: Hypercalcaemia of malignancy
     Dosage: 4 MILLIGRAM
     Route: 040
  4. FLUOROURACIL\LEUCOVORIN CALCIUM\OXALIPLATIN [Concomitant]
     Active Substance: FLUOROURACIL\LEUCOVORIN CALCIUM\OXALIPLATIN
     Indication: Hypercalcaemia of malignancy
     Dosage: UNK

REACTIONS (8)
  - Cardiac arrest [Fatal]
  - Spinal fracture [Unknown]
  - Adenocarcinoma metastatic [Not Recovered/Not Resolved]
  - Acute respiratory failure [Unknown]
  - Hypercalcaemia of malignancy [Unknown]
  - Drug ineffective for unapproved indication [Unknown]
  - Off label use [Unknown]
  - Infection [Unknown]
